FAERS Safety Report 16867081 (Version 1)
Quarter: 2019Q3

REPORT INFORMATION
  Report Type: Spontaneous
  Country: NO (occurrence: NO)
  Receive Date: 20190930
  Receipt Date: 20190930
  Transmission Date: 20191005
  Serious: Yes (Hospitalization)
  Sender: FDA-Public Use
  Company Number: NO-TEVA-2019-NO-1114010

PATIENT
  Age: 77 Year
  Sex: Male

DRUGS (2)
  1. OXYCODONE [Suspect]
     Active Substance: OXYCODONE
     Dosage: UNKNOWN DOSAGE
     Route: 065
  2. RASAGILINE. [Interacting]
     Active Substance: RASAGILINE
     Indication: PARKINSON^S DISEASE
     Dosage: UNKNOWN DOSAGE
     Route: 065

REACTIONS (6)
  - Confusional state [Recovered/Resolved]
  - Somnolence [Recovered/Resolved]
  - Drug interaction [Recovered/Resolved]
  - Depressed level of consciousness [Recovered/Resolved]
  - Asthenia [Recovered/Resolved]
  - Hallucination [Recovered/Resolved]
